FAERS Safety Report 20605111 (Version 1)
Quarter: 2022Q1

REPORT INFORMATION
  Report Type: Report from Study
  Country: US (occurrence: US)
  Receive Date: 20220317
  Receipt Date: 20220317
  Transmission Date: 20220423
  Serious: Yes (Death)
  Sender: FDA-Public Use
  Company Number: US-ABBVIE-21K-163-3858026-00

PATIENT
  Age: 77 Year
  Sex: Male

DRUGS (12)
  1. VENCLEXTA [Suspect]
     Active Substance: VENETOCLAX
     Indication: Mantle cell lymphoma
     Dosage: 10MG, 50 MG, 100 MG TABLET
     Route: 048
     Dates: start: 20210405
  2. MULTI B COMPLEX [Concomitant]
     Indication: Product used for unknown indication
     Dosage: 1 CAPSULE ORAL
     Route: 048
  3. ALLOPURINOL [Concomitant]
     Active Substance: ALLOPURINOL
     Indication: Product used for unknown indication
     Dosage: 1 TABLET ORAL ONCE A DAY FOR 14 DAYS
     Route: 048
     Dates: start: 20210405
  4. DEXAMETHASONE [Concomitant]
     Active Substance: DEXAMETHASONE
     Indication: Product used for unknown indication
     Dosage: 1 TABLET ORAL ONCE A DAY FOR 14 DAYS
     Route: 048
     Dates: start: 20210405
  5. TRIAMCINOLONE ACETONIDE [Concomitant]
     Active Substance: TRIAMCINOLONE ACETONIDE
     Indication: Product used for unknown indication
     Dosage: APPLICATION TOPICAL TWICE A DAY FOR 2 WEEKS
     Route: 061
     Dates: start: 20210202
  6. ACYCLOVIR [Concomitant]
     Active Substance: ACYCLOVIR
     Indication: Product used for unknown indication
     Dosage: 1 TABLET ORAL TWICE A DAY
     Route: 048
     Dates: start: 20210128
  7. VITAMIN B12 [Concomitant]
     Active Substance: CYANOCOBALAMIN
     Indication: Product used for unknown indication
     Dosage: 1 AMPOULE INJECTION ONCE A MONTH
     Route: 048
     Dates: start: 20210126
  8. TRAMADOL [Concomitant]
     Active Substance: TRAMADOL
     Indication: Pain
     Dosage: 1-2 TABLET ORAL EVERY 6 HRS AS NEEDED
     Route: 048
     Dates: start: 20190924
  9. CLOPIDOGREL [Concomitant]
     Active Substance: CLOPIDOGREL BISULFATE
     Indication: Product used for unknown indication
     Dosage: 1 TABLET ORAL DAILY
     Route: 048
  10. NITROGLYCERIN [Concomitant]
     Active Substance: NITROGLYCERIN
     Indication: Product used for unknown indication
     Dosage: 1 TABLET SUBLINGUAL AS DIRECTED PRN
     Route: 060
  11. ASPIRIN [Concomitant]
     Active Substance: ASPIRIN
     Indication: Product used for unknown indication
     Dosage: 81 MG 1 TABLET ORAL DAILY
     Route: 048
  12. ATORVASTATIN [Concomitant]
     Active Substance: ATORVASTATIN
     Indication: Product used for unknown indication
     Dosage: 40 MG 1 TABLET ORAL DAILY
     Route: 048

REACTIONS (2)
  - Death [Fatal]
  - Off label use [Unknown]

NARRATIVE: CASE EVENT DATE: 20210405
